FAERS Safety Report 7810678-8 (Version None)
Quarter: 2011Q4

REPORT INFORMATION
  Report Type: 
  Country: None (occurrence: None)
  Receive Date: 20111013
  Receipt Date: 20091001
  Transmission Date: 20120403
  Serious: No
  Sender: FDA-Public Use
  Company Number: 2009BI031748

PATIENT
  Age: 43 Year
  Sex: Male

DRUGS (1)
  1. TYSABRI [Suspect]
     Indication: MULTIPLE SCLEROSIS
     Route: 042
     Dates: start: 20090817

REACTIONS (4)
  - URTICARIA [None]
  - URINARY TRACT INFECTION [None]
  - PRURITUS [None]
  - ADVERSE DRUG REACTION [None]
